FAERS Safety Report 10155789 (Version 1)
Quarter: 2014Q2

REPORT INFORMATION
  Report Type: Spontaneous
  Country: IT (occurrence: IT)
  Receive Date: 20140506
  Receipt Date: 20140506
  Transmission Date: 20141212
  Serious: Yes (Hospitalization)
  Sender: FDA-Public Use
  Company Number: IT-BAYER-2014-063259

PATIENT
  Age: 72 Year
  Sex: Male

DRUGS (1)
  1. ASPIRINA 03 [Suspect]
     Indication: PYREXIA
     Dosage: 1 DF, PRN
     Route: 048
     Dates: start: 20140308, end: 20140310

REACTIONS (2)
  - Diarrhoea haemorrhagic [Not Recovered/Not Resolved]
  - Syncope [Not Recovered/Not Resolved]
